FAERS Safety Report 11223637 (Version 2)
Quarter: 2015Q3

REPORT INFORMATION
  Report Type: Spontaneous
  Country: US (occurrence: US)
  Receive Date: 20150629
  Receipt Date: 20150831
  Transmission Date: 20151125
  Serious: Yes (Hospitalization)
  Sender: FDA-Public Use
  Company Number: US-AUROBINDO-AUR-APL-2015-05342

PATIENT
  Age: 89 Year
  Sex: Male
  Weight: 90 kg

DRUGS (6)
  1. DETROL LA [Suspect]
     Active Substance: TOLTERODINE TARTRATE
     Indication: MICTURITION URGENCY
     Dosage: 4 MG, ONCE A DAY
     Route: 065
  2. COUMADIN [Suspect]
     Active Substance: WARFARIN SODIUM
     Indication: PRODUCT USED FOR UNKNOWN INDICATION
     Route: 065
  3. METOPROLOL [Suspect]
     Active Substance: METOPROLOL
     Indication: ATRIAL FIBRILLATION
     Dosage: 50 MG, ONCE A DAY
     Route: 065
     Dates: start: 2013
  4. TOLTERODINE [Suspect]
     Active Substance: TOLTERODINE
     Indication: MICTURITION URGENCY
     Dosage: 4 MG, ONCE A DAY
     Route: 065
     Dates: start: 2014, end: 201501
  5. ASPIRIN. [Concomitant]
     Active Substance: ASPIRIN
     Indication: PRODUCT USED FOR UNKNOWN INDICATION
     Dosage: 85 MG, UNK
     Route: 065
  6. HYDROCHLOROTHIAZIDE. [Concomitant]
     Active Substance: HYDROCHLOROTHIAZIDE
     Indication: PRODUCT USED FOR UNKNOWN INDICATION
     Dosage: 25 MG, DAILY
     Route: 065

REACTIONS (15)
  - Inappropriate schedule of drug administration [Not Recovered/Not Resolved]
  - Movement disorder [Unknown]
  - Constipation [Unknown]
  - Blood glucose increased [Unknown]
  - Glycosylated haemoglobin increased [Unknown]
  - Cerebral haemorrhage [Unknown]
  - Memory impairment [Not Recovered/Not Resolved]
  - Haemorrhage [Recovered/Resolved]
  - Pollakiuria [Unknown]
  - Contusion [Recovered/Resolved]
  - Loss of consciousness [Recovered/Resolved]
  - Fall [Recovered/Resolved]
  - Hypersensitivity [Unknown]
  - Underdose [Unknown]
  - Fatigue [Unknown]

NARRATIVE: CASE EVENT DATE: 2013
